FAERS Safety Report 7116136-0 (Version None)
Quarter: 2010Q4

REPORT INFORMATION
  Report Type: 
  Country: None (occurrence: None)
  Receive Date: 20101122
  Receipt Date: 20101109
  Transmission Date: 20110411
  Serious: Yes (Hospitalization)
  Sender: FDA-Public Use
  Company Number: PHHY2010US76001

PATIENT
  Sex: Female

DRUGS (2)
  1. EXJADE [Suspect]
     Indication: THALASSAEMIA
     Dosage: 1000 MG, QD
     Route: 048
  2. DESFERAL [Suspect]
     Route: 042

REACTIONS (4)
  - BACK PAIN [None]
  - NAUSEA [None]
  - PAIN [None]
  - TREATMENT NONCOMPLIANCE [None]
